FAERS Safety Report 19435363 (Version 1)
Quarter: 2021Q2

REPORT INFORMATION
  Report Type: Spontaneous
  Country: US (occurrence: US)
  Receive Date: 20210617
  Receipt Date: 20210617
  Transmission Date: 20210717
  Serious: No
  Sender: FDA-Public Use
  Company Number: US-ORGANON-O2106USA001234

PATIENT
  Sex: Female

DRUGS (16)
  1. GANIRELIX ACETATE INJECTION [Concomitant]
     Active Substance: GANIRELIX ACETATE
  2. OFLOXACIN. [Concomitant]
     Active Substance: OFLOXACIN
  3. FLUTICASONE. [Concomitant]
     Active Substance: FLUTICASONE
  4. IPRATROPIUM [Concomitant]
     Active Substance: IPRATROPIUM
  5. BUDESONIDE. [Concomitant]
     Active Substance: BUDESONIDE
  6. MEDROXYPROGESTERONI ACETAS [Concomitant]
  7. OVIDREL [Concomitant]
     Active Substance: CHORIOGONADOTROPIN ALFA
  8. AZELASTIN [AZELASTINE] [Concomitant]
  9. FOLLISTIM AQ [Suspect]
     Active Substance: FOLLITROPIN
     Indication: INFERTILITY FEMALE
     Dosage: STRENGHT: 900 IU/1.08 ML, INJECT 375 UNITS
     Route: 058
     Dates: start: 20200518
  10. GANIRELIX ACETATE INJECTION [Suspect]
     Active Substance: GANIRELIX ACETATE
     Indication: INFERTILITY FEMALE
     Dosage: INJECT 250 MCG
     Route: 058
     Dates: start: 20201006
  11. FOLLISTIM [Concomitant]
     Active Substance: FOLLITROPIN
  12. ESTRADIOL. [Concomitant]
     Active Substance: ESTRADIOL
  13. ALLERGY RELIEF [CETIRIZINE HYDROCHLORIDE] [Concomitant]
  14. MENOPUR [Concomitant]
     Active Substance: FOLLITROPIN\LUTEINIZING HORMONE
  15. NOVAREL [Concomitant]
     Active Substance: CHORIOGONADOTROPIN ALFA
  16. ENDOMETRIN [Concomitant]
     Active Substance: PROGESTERONE

REACTIONS (1)
  - Abdominal distension [Unknown]
